FAERS Safety Report 24886776 (Version 2)
Quarter: 2025Q1

REPORT INFORMATION
  Report Type: Spontaneous
  Country: JP (occurrence: JP)
  Receive Date: 20250126
  Receipt Date: 20250205
  Transmission Date: 20250409
  Serious: Yes (Death, Other)
  Sender: MERCK
  Company Number: JP-MSD-M2025-02239

PATIENT
  Age: 8 Decade

DRUGS (3)
  1. KEYTRUDA [Suspect]
     Active Substance: PEMBROLIZUMAB
     Indication: Gallbladder cancer stage IV
     Dosage: 200 MILLIGRAM, Q3W
     Route: 041
     Dates: start: 202410, end: 202410
  2. GEMCITABINE HYDROCHLORIDE [Suspect]
     Active Substance: GEMCITABINE HYDROCHLORIDE
     Route: 065
  3. CISPLATIN [Suspect]
     Active Substance: CISPLATIN
     Route: 065

REACTIONS (3)
  - Cytokine release syndrome [Fatal]
  - Pyrexia [Recovered/Resolved]
  - Hepatic function abnormal [Recovering/Resolving]

NARRATIVE: CASE EVENT DATE: 20241001
